FAERS Safety Report 6989999-7 (Version None)
Quarter: 2010Q3

REPORT INFORMATION
  Report Type: 
  Country: None (occurrence: None)
  Receive Date: 20100916
  Receipt Date: 20100402
  Transmission Date: 20110219
  Serious: Yes (Other)
  Sender: FDA-Public Use
  Company Number: US-PFIZER INC-2010022125

PATIENT
  Age: 15 Year
  Sex: Female

DRUGS (2)
  1. LYRICA [Suspect]
     Indication: BACK PAIN
     Dosage: UNK
     Dates: start: 20100201, end: 20100212
  2. LEVONORGESTREL + ETHINYL ESTRADIOL [Interacting]
     Indication: CONTRACEPTION
     Dosage: UNK
     Dates: start: 20090901

REACTIONS (3)
  - DRUG INTERACTION [None]
  - METRORRHAGIA [None]
  - MOOD SWINGS [None]
